FAERS Safety Report 9757355 (Version 2)
Quarter: 2014Q1

REPORT INFORMATION
  Report Type: Spontaneous
  Country: US (occurrence: US)
  Receive Date: 20131214
  Receipt Date: 20140217
  Transmission Date: 20141002
  Serious: No
  Sender: FDA-Public Use
  Company Number: US-B.I. PHARMACEUTICALS,INC./RIDGEFIELD-2013-BI-40216BP

PATIENT
  Age: 86 Year
  Sex: Female

DRUGS (6)
  1. SPIRIVA [Suspect]
     Indication: PULMONARY FIBROSIS
     Dosage: 18 MCG
     Route: 055
     Dates: start: 201310, end: 20131129
  2. GABAPENTIN [Concomitant]
     Indication: NEUROPATHY PERIPHERAL
     Route: 048
  3. MAGNESIUM [Concomitant]
     Indication: LIMB DISCOMFORT
     Route: 048
  4. ACTIMMUNE [Concomitant]
     Indication: INFECTION
     Dosage: FORMULATION:SUBCUTANEOUS
     Route: 058
  5. SYNTHROID [Concomitant]
     Indication: HYPOTHYROIDISM
     Dosage: 125 MCG
     Route: 048
  6. MULTIVITAMINS [Concomitant]
     Indication: SUPPLEMENTATION THERAPY
     Route: 048

REACTIONS (4)
  - Lower respiratory tract infection [Not Recovered/Not Resolved]
  - Off label use [Unknown]
  - Product quality issue [Recovered/Resolved]
  - Product quality issue [Recovered/Resolved]
